FAERS Safety Report 23291065 (Version 1)
Quarter: 2023Q4

REPORT INFORMATION
  Report Type: Spontaneous
  Country: US (occurrence: US)
  Receive Date: 20231213
  Receipt Date: 20231213
  Transmission Date: 20240110
  Serious: Yes (Hospitalization)
  Sender: FDA-Public Use
  Company Number: US-GLAXOSMITHKLINE-US2023171166

PATIENT

DRUGS (1)
  1. MEPRON [Suspect]
     Active Substance: ATOVAQUONE
     Indication: Antifungal treatment
     Dosage: 10 ML, QD, 750MG/5ML
     Route: 048
     Dates: start: 200107

REACTIONS (1)
  - Fluid retention [Unknown]
